FAERS Safety Report 11529399 (Version 1)
Quarter: 2015Q3

REPORT INFORMATION
  Report Type: Spontaneous
  Country: US (occurrence: None)
  Receive Date: 20150918
  Receipt Date: 20150918
  Transmission Date: 20151125
  Serious: No
  Sender: FDA-Public Use
  Company Number: None

PATIENT
  Age: 53 Year
  Sex: Female
  Weight: 66.23 kg

DRUGS (1)
  1. TOPICORT [Suspect]
     Active Substance: DESOXIMETASONE
     Indication: RASH
     Route: 061

REACTIONS (2)
  - Blood urine present [None]
  - Urinary tract infection [None]

NARRATIVE: CASE EVENT DATE: 20150916
